FAERS Safety Report 10731291 (Version 1)
Quarter: 2015Q1

REPORT INFORMATION
  Report Type: Spontaneous
  Country: US (occurrence: US)
  Receive Date: 20150122
  Receipt Date: 20150122
  Transmission Date: 20150721
  Serious: No
  Sender: FDA-Public Use
  Company Number: US-BAUSCH-SYM-2013-12453

PATIENT
  Sex: Female

DRUGS (1)
  1. XENAZINE [Suspect]
     Active Substance: TETRABENAZINE
     Indication: HUNTINGTON^S DISEASE
     Dosage: 25 MG TABLETS AT A DOSE OF 1 TABLET IN THE MORNING, 1 TABLET IN THE AFTERNOON, AND 1/2 TABLET IN THE
     Route: 048
     Dates: start: 201110

REACTIONS (1)
  - Drug ineffective [Recovered/Resolved]
